FAERS Safety Report 21999724 (Version 1)
Quarter: 2023Q1

REPORT INFORMATION
  Report Type: Spontaneous
  Country: TW (occurrence: TW)
  Receive Date: 20230216
  Receipt Date: 20230216
  Transmission Date: 20230417
  Serious: Yes (Other)
  Sender: FDA-Public Use
  Company Number: TW-MYLANLABS-2023M1017103

PATIENT
  Age: 66 Year
  Sex: Female

DRUGS (14)
  1. CISPLATIN [Suspect]
     Active Substance: CISPLATIN
     Indication: Lung adenocarcinoma stage IV
     Dosage: 75 MILLIGRAM/SQ. METER, CYCLE (ADMINISTERED EVERY 3 WEEKS)
     Route: 042
     Dates: start: 202103
  2. CISPLATIN [Suspect]
     Active Substance: CISPLATIN
     Indication: Metastases to liver
  3. CISPLATIN [Suspect]
     Active Substance: CISPLATIN
     Indication: Metastases to bone
  4. PEMETREXED [Suspect]
     Active Substance: PEMETREXED
     Indication: Lung adenocarcinoma stage IV
     Dosage: 500 MILLIGRAM/SQ. METER, CYCLE (ADMINISTERED EVERY 3 WEEKS)
     Route: 042
     Dates: start: 202103
  5. PEMETREXED [Suspect]
     Active Substance: PEMETREXED
     Indication: Metastases to liver
  6. PEMETREXED [Suspect]
     Active Substance: PEMETREXED
     Indication: Metastases to bone
  7. XGEVA [Suspect]
     Active Substance: DENOSUMAB
     Indication: Lung adenocarcinoma stage IV
     Dosage: UNK
     Route: 065
  8. XGEVA [Suspect]
     Active Substance: DENOSUMAB
     Indication: Metastases to bone
  9. ATEZOLIZUMAB [Suspect]
     Active Substance: ATEZOLIZUMAB
     Indication: Lung adenocarcinoma stage IV
     Dosage: 1500 MILLIGRAM, CYCLE (ADMINISTERED EVERY 3 WEEKS)
     Route: 042
     Dates: start: 202103
  10. ATEZOLIZUMAB [Suspect]
     Active Substance: ATEZOLIZUMAB
     Indication: Metastases to bone
  11. ATEZOLIZUMAB [Suspect]
     Active Substance: ATEZOLIZUMAB
     Indication: Metastases to liver
  12. BEVACIZUMAB [Suspect]
     Active Substance: BEVACIZUMAB
     Indication: Lung adenocarcinoma stage IV
     Dosage: 7.5 MILLIGRAM/SQ. METER, CYCLE (ADMINISTERED EVERY 3 WEEKS)
     Route: 042
     Dates: start: 202103
  13. BEVACIZUMAB [Suspect]
     Active Substance: BEVACIZUMAB
     Indication: Metastases to liver
  14. BEVACIZUMAB [Suspect]
     Active Substance: BEVACIZUMAB
     Indication: Metastases to bone

REACTIONS (2)
  - Drug ineffective [Unknown]
  - Metastases to bone [Unknown]
